FAERS Safety Report 14036068 (Version 1)
Quarter: 2017Q4

REPORT INFORMATION
  Report Type: Spontaneous
  Country: US (occurrence: US)
  Receive Date: 20171003
  Receipt Date: 20171003
  Transmission Date: 20180321
  Serious: No
  Sender: FDA-Public Use
  Company Number: US-ROCHE-1871589

PATIENT
  Sex: Male

DRUGS (15)
  1. VITAMIN D3 [Concomitant]
     Active Substance: CHOLECALCIFEROL
  2. AVODART [Concomitant]
     Active Substance: DUTASTERIDE
  3. ZELBORAF [Suspect]
     Active Substance: VEMURAFENIB
     Indication: MALIGNANT MELANOMA
     Dosage: 240MG PER 4 TABS PO EVERY 12 HOURS
     Route: 048
     Dates: start: 20161201
  4. COTELLIC [Suspect]
     Active Substance: COBIMETINIB
     Indication: CHOLANGIOCARCINOMA
  5. COLACE [Concomitant]
     Active Substance: DOCUSATE SODIUM
  6. ACIDOPHILUS [Concomitant]
     Active Substance: LACTOBACILLUS ACIDOPHILUS
  7. PRILOSEC [Concomitant]
     Active Substance: OMEPRAZOLE MAGNESIUM
  8. FLOMAX [Concomitant]
     Active Substance: TAMSULOSIN HYDROCHLORIDE
  9. LEXAPRO [Concomitant]
     Active Substance: ESCITALOPRAM OXALATE
  10. SYNTHROID [Concomitant]
     Active Substance: LEVOTHYROXINE SODIUM
  11. OMEGA 3 [Concomitant]
     Active Substance: OMEGA-3 FATTY ACIDS
     Route: 065
  12. KEPPRA [Concomitant]
     Active Substance: LEVETIRACETAM
  13. ZOCOR [Concomitant]
     Active Substance: SIMVASTATIN
  14. COTELLIC [Suspect]
     Active Substance: COBIMETINIB
     Indication: METASTASES TO LIVER
     Dosage: 20MG PER 3 TABS PO QDAY
     Route: 048
     Dates: start: 20161201
  15. TRAZODONE HYDROCHLORIDE. [Concomitant]
     Active Substance: TRAZODONE HYDROCHLORIDE

REACTIONS (1)
  - Fatigue [Not Recovered/Not Resolved]
